FAERS Safety Report 24145912 (Version 2)
Quarter: 2024Q3

REPORT INFORMATION
  Report Type: Report from Study
  Country: US (occurrence: US)
  Receive Date: 20240729
  Receipt Date: 20240829
  Transmission Date: 20241017
  Serious: Yes (Hospitalization)
  Sender: ACADIA PHARMACEUTICALS
  Company Number: US-ACADIA PHARMACEUTICALS INC.-ACA-2024-PIM-003245

PATIENT
  Sex: Male

DRUGS (33)
  1. NUPLAZID [Suspect]
     Active Substance: PIMAVANSERIN TARTRATE
     Indication: Parkinson^s disease psychosis
     Dosage: 34 MILLIGRAM, QD
     Route: 048
     Dates: start: 20230215
  2. NUPLAZID [Suspect]
     Active Substance: PIMAVANSERIN TARTRATE
     Indication: Parkinson^s disease
     Dosage: 34 MILLIGRAM, QD
     Route: 048
     Dates: start: 202304
  3. NUPLAZID [Suspect]
     Active Substance: PIMAVANSERIN TARTRATE
     Dosage: 34 MILLIGRAM, QD
     Route: 048
     Dates: start: 20240513
  4. CLOZAPINE [Concomitant]
     Active Substance: CLOZAPINE
     Indication: Insomnia
     Dosage: 25 MILLIGRAM, 0.5 TABLETS (12.5 MG TOTAL), BY MOUTH NIGHTLY
     Route: 048
     Dates: start: 20240619
  5. CLOZAPINE [Concomitant]
     Active Substance: CLOZAPINE
     Indication: Anxiety
  6. POTASSIUM CHLORIDE [Concomitant]
     Active Substance: POTASSIUM CHLORIDE
  7. RIVASTIGMINE [Concomitant]
     Active Substance: RIVASTIGMINE
     Dosage: 3 MILLIGRAM, 1 CAPSULE (3MG TOTAL ) BY MOUTH 2 TIMES DAILY.
     Route: 048
     Dates: start: 20240326
  8. RIVASTIGMINE [Concomitant]
     Active Substance: RIVASTIGMINE
     Dosage: 1.5 MILLIGRAM
  9. CETIRIZINE [Concomitant]
     Active Substance: CETIRIZINE HYDROCHLORIDE
     Dosage: 10 MILLIGRAM
  10. FUROSEMIDE [Concomitant]
     Active Substance: FUROSEMIDE
  11. DILTIAZEM [Concomitant]
     Active Substance: DILTIAZEM
     Dosage: 90 MILLIGRAM
  12. HYDROCHLOROTHIAZIDE [Concomitant]
     Active Substance: HYDROCHLOROTHIAZIDE
     Dosage: 12.5 MILLIGRAM
  13. TYLENOL [Concomitant]
     Active Substance: ACETAMINOPHEN
  14. XARELTO [Concomitant]
     Active Substance: RIVAROXABAN
     Dosage: 20 MILLIGRAM
  15. LIPITOR [Concomitant]
     Active Substance: ATORVASTATIN CALCIUM
  16. SINEMET [Concomitant]
     Active Substance: CARBIDOPA\LEVODOPA
  17. VITAMIN D3 [Concomitant]
     Active Substance: CHOLECALCIFEROL
     Dosage: 400 UNIT
  18. CLOZARIL [Concomitant]
     Active Substance: CLOZAPINE
  19. DILTIAZEM [Concomitant]
     Active Substance: DILTIAZEM
  20. HYDRODIURIL [Concomitant]
     Active Substance: HYDROCHLOROTHIAZIDE
  21. NIZORAL [Concomitant]
     Active Substance: KETOCONAZOLE
  22. MILK OF MAGNESIA [Concomitant]
     Active Substance: MAGNESIUM HYDROXIDE
  23. EXELON [Concomitant]
     Active Substance: RIVASTIGMINE TARTRATE
  24. ACETAMINOPHEN [Concomitant]
     Active Substance: ACETAMINOPHEN
     Dosage: 500 MILLIGRAM, BID
     Route: 048
  25. ACETAMINOPHEN [Concomitant]
     Active Substance: ACETAMINOPHEN
     Dosage: 1000MG BY MOUTH EVERY 6 HOURS AS NEEDED
     Route: 048
  26. ATORVASTATIN [Concomitant]
     Active Substance: ATORVASTATIN
     Dosage: 10 MILLIGRAM, BY MOUTH DAILY WITH FOOD
     Route: 048
     Dates: start: 20220819
  27. CARBIDOPA LEVODOPA [Concomitant]
     Active Substance: CARBIDOPA\LEVODOPA
     Dosage: 25-100MG CR, 1 TABLET BY MOUTH NIGHTLY
     Dates: start: 20240108
  28. CARBIDOPA LEVODOPA [Concomitant]
     Active Substance: CARBIDOPA\LEVODOPA
     Dosage: 25-100MG, 1 TABLET BY MOUTH
     Dates: start: 20240515
  29. CHOLECALCIFEROL [Concomitant]
     Active Substance: CHOLECALCIFEROL
     Dosage: 5000UNITS, 1 TABLET BY MOUTH DAILY
     Route: 048
  30. DILTIAZEM HYDROCHLORIDE [Concomitant]
     Active Substance: DILTIAZEM HYDROCHLORIDE
     Dosage: 120 MILLIGRAM, QD
     Route: 048
  31. HYDROCHLOROTHIAZIDE [Concomitant]
     Active Substance: HYDROCHLOROTHIAZIDE
     Dosage: 12.5 MILLIGRAM
     Route: 048
     Dates: start: 20230621
  32. KETOCONAZOLE [Concomitant]
     Active Substance: KETOCONAZOLE
     Dosage: 2%
     Route: 061
  33. MAGNESIUM HYDROXIDE [Concomitant]
     Active Substance: MAGNESIUM HYDROXIDE
     Dosage: 450MG/ 5ML SUSPENSION, 15ML BY MOUTH NIGHTLY
     Route: 048

REACTIONS (4)
  - Sciatica [Not Recovered/Not Resolved]
  - Insomnia [Not Recovered/Not Resolved]
  - Anxiety [Not Recovered/Not Resolved]
  - Hypersensitivity [Not Recovered/Not Resolved]
